FAERS Safety Report 20841427 (Version 1)
Quarter: 2022Q2

REPORT INFORMATION
  Report Type: Report from Study
  Country: US (occurrence: US)
  Receive Date: 20220518
  Receipt Date: 20220518
  Transmission Date: 20220720
  Serious: Yes (Other)
  Sender: FDA-Public Use
  Company Number: US-JNJFOC-20220323152

PATIENT
  Age: 6 Decade
  Sex: Female

DRUGS (2)
  1. SIMPONI [Suspect]
     Active Substance: GOLIMUMAB
     Indication: Rheumatoid arthritis
     Route: 058
     Dates: start: 20211210
  2. SIMPONI [Suspect]
     Active Substance: GOLIMUMAB
     Route: 058
     Dates: start: 20211210

REACTIONS (3)
  - Pneumonia bacterial [Unknown]
  - Alopecia [Unknown]
  - Biopsy skin [Unknown]
